FAERS Safety Report 5496435-9 (Version None)
Quarter: 2007Q4

REPORT INFORMATION
  Report Type: 
  Country: None (occurrence: None)
  Receive Date: 20071023
  Receipt Date: 20071011
  Transmission Date: 20080405
  Serious: No
  Sender: FDA-Public Use
  Company Number: TCI2007A05353

PATIENT
  Age: 67 Year
  Sex: Female

DRUGS (4)
  1. ACTOS [Suspect]
     Indication: DIABETES MELLITUS
     Dosage: 15 MG(15 MG, 1 IN 1 D)  PER ORAL
     Route: 048
     Dates: start: 20070423, end: 20070813
  2. ASPIRIN [Concomitant]
  3. CARVEDILOL [Concomitant]
  4. LIVALO ( ITAVASTATIN CALCIUM) [Concomitant]

REACTIONS (1)
  - PANCYTOPENIA [None]
